FAERS Safety Report 14686346 (Version 1)
Quarter: 2018Q1

REPORT INFORMATION
  Report Type: Spontaneous
  Country: ES (occurrence: ES)
  Receive Date: 20180327
  Receipt Date: 20180327
  Transmission Date: 20180509
  Serious: Yes (Other)
  Sender: FDA-Public Use
  Company Number: ES-SHIRE-ES201811520

PATIENT

DRUGS (5)
  1. MERCAPTOPURINA SILVER [Suspect]
     Active Substance: MERCAPTOPURINE
     Indication: ACUTE LYMPHOCYTIC LEUKAEMIA
     Route: 048
     Dates: start: 20171016, end: 20171218
  2. ZOVIRAX [Concomitant]
     Active Substance: ACYCLOVIR
     Indication: OPPORTUNISTIC INFECTION PROPHYLAXIS
  3. SEPTRIN PAEDIATRIC [Concomitant]
     Active Substance: SULFAMETHOXAZOLE\TRIMETHOPRIM
     Indication: PARASITIC INFECTION PROPHYLAXIS
  4. ONCASPAR [Suspect]
     Active Substance: PEGASPARGASE
     Indication: ACUTE LYMPHOCYTIC LEUKAEMIA
     Route: 030
     Dates: start: 20171016, end: 20171218
  5. METOTREXATO                        /00113801/ [Suspect]
     Active Substance: METHOTREXATE
     Indication: ACUTE LYMPHOCYTIC LEUKAEMIA
     Dosage: 7.5 MG, UNK
     Route: 048
     Dates: start: 20171016

REACTIONS (2)
  - Vomiting [Recovered/Resolved]
  - Abdominal pain [Recovered/Resolved]

NARRATIVE: CASE EVENT DATE: 20171211
